FAERS Safety Report 7293962-9 (Version None)
Quarter: 2011Q1

REPORT INFORMATION
  Report Type: 
  Country: None (occurrence: None)
  Receive Date: 20110203
  Receipt Date: 20110121
  Transmission Date: 20110831
  Serious: Yes (Disabling)
  Sender: FDA-Public Use
  Company Number: 2011SP003202

PATIENT
  Sex: Male

DRUGS (2)
  1. DULERA TABLET [Suspect]
     Indication: ASTHMA
     Dosage: BID;INH
     Route: 055
  2. ADVAIR DISKUS 100/50 [Concomitant]

REACTIONS (5)
  - DRUG HYPERSENSITIVITY [None]
  - PRURITUS [None]
  - THROAT TIGHTNESS [None]
  - PHARYNGEAL INFLAMMATION [None]
  - RASH [None]
